FAERS Safety Report 8994655 (Version 1)
Quarter: 2013Q1

REPORT INFORMATION
  Report Type: Spontaneous
  Country: US (occurrence: US)
  Receive Date: 20130102
  Receipt Date: 20130102
  Transmission Date: 20140127
  Serious: No
  Sender: FDA-Public Use
  Company Number: US-AMGEN-USASP2012077592

PATIENT
  Sex: Female

DRUGS (3)
  1. ENBREL [Suspect]
     Indication: PSORIATIC ARTHROPATHY
     Dosage: 50 MG, QWK
     Dates: start: 20031101, end: 200909
  2. HUMIRA [Concomitant]
     Dosage: UNK
     Dates: start: 2009
  3. METHOTREXATE [Concomitant]
     Dosage: UNK
     Dates: start: 2009

REACTIONS (2)
  - Drug effect incomplete [Unknown]
  - Psoriasis [Recovered/Resolved]
